FAERS Safety Report 9868371 (Version 1)
Quarter: 2014Q1

REPORT INFORMATION
  Report Type: Spontaneous
  Country: TR (occurrence: TR)
  Receive Date: 20140204
  Receipt Date: 20140204
  Transmission Date: 20141002
  Serious: Yes (Hospitalization)
  Sender: FDA-Public Use
  Company Number: TR-MYLANLABS-2014S1001744

PATIENT
  Age: 3 Year
  Sex: Female
  Weight: 15 kg

DRUGS (8)
  1. FENTANYL [Suspect]
     Indication: INDUCTION OF ANAESTHESIA
     Dosage: 1 MICROG/KG
     Route: 065
  2. PROPOFOL [Suspect]
     Indication: INDUCTION OF ANAESTHESIA
     Dosage: 2 MG/KG
     Route: 065
  3. ROCURONIUM BROMIDE [Suspect]
     Indication: INDUCTION OF ANAESTHESIA
     Dosage: 0.8 MG/KG
     Route: 065
  4. NITROUS OXIDE [Suspect]
     Indication: MAINTENANCE OF ANAESTHESIA
     Dosage: 50%
     Route: 065
  5. SEVOFLURANE [Suspect]
     Indication: MAINTENANCE OF ANAESTHESIA
     Dosage: 2% MINIMUM ALVEOLAR CONCENTRATION
     Route: 065
  6. CEFTRIAXONE [Concomitant]
     Route: 042
  7. MANNITOL [Concomitant]
     Route: 042
  8. DEXAMETHASONE [Concomitant]
     Route: 042

REACTIONS (2)
  - Sialoadenitis [Recovering/Resolving]
  - VIIth nerve paralysis [Recovered/Resolved]
